FAERS Safety Report 6994461-1 (Version None)
Quarter: 2010Q3

REPORT INFORMATION
  Report Type: 
  Country: None (occurrence: None)
  Receive Date: 20100917
  Receipt Date: 20100909
  Transmission Date: 20110219
  Serious: Yes (Hospitalization)
  Sender: FDA-Public Use
  Company Number: DE-JNJFOC-20090103627

PATIENT
  Age: 75 Year
  Sex: Female

DRUGS (11)
  1. LEVOFLOXACIN [Suspect]
     Indication: HELICOBACTER INFECTION
     Route: 048
  2. AMOXICILLIN [Suspect]
     Indication: HELICOBACTER INFECTION
     Route: 048
  3. PANTOPRAZOLE SODIUM [Suspect]
     Indication: HELICOBACTER INFECTION
     Route: 048
  4. AMLODIPINE [Concomitant]
     Indication: HYPERTENSION
     Route: 048
  5. ASS 100 HEXAL [Concomitant]
     Indication: THROMBOSIS PROPHYLAXIS
     Route: 048
  6. BISOPROLOL [Concomitant]
     Indication: HYPERTENSION
     Route: 048
  7. DIGITOXIN [Concomitant]
     Indication: ATRIAL FIBRILLATION
     Route: 048
  8. FEMARA [Concomitant]
     Indication: BREAST CANCER
     Route: 048
  9. RAMIPRIL [Concomitant]
     Indication: HYPERTENSION
     Route: 048
  10. SELENIUM [Concomitant]
     Indication: PROPHYLAXIS
     Route: 048
  11. SIMVASTATIN [Concomitant]
     Indication: HEPATIC STEATOSIS
     Route: 048

REACTIONS (6)
  - ABDOMINAL PAIN UPPER [None]
  - DIARRHOEA [None]
  - DIZZINESS [None]
  - GENERAL PHYSICAL HEALTH DETERIORATION [None]
  - INTESTINAL MUCOSAL HYPERTROPHY [None]
  - WEIGHT DECREASED [None]
